FAERS Safety Report 25524881 (Version 1)
Quarter: 2025Q3

REPORT INFORMATION
  Report Type: Spontaneous
  Country: EU (occurrence: EU)
  Receive Date: 20250707
  Receipt Date: 20250707
  Transmission Date: 20251021
  Serious: Yes (Hospitalization, Other)
  Sender: GLAND PHARMA LTD
  Company Number: EU-GLANDPHARMA-PT-2025GLNLIT01592

PATIENT
  Age: 60 Year
  Sex: Male

DRUGS (1)
  1. CISPLATIN [Suspect]
     Active Substance: CISPLATIN
     Indication: Laryngeal squamous cell carcinoma
     Route: 065

REACTIONS (4)
  - Intervertebral discitis [Recovering/Resolving]
  - Bone marrow oedema [Recovering/Resolving]
  - Pharyngeal ulceration [Recovering/Resolving]
  - Product use in unapproved indication [Unknown]
